FAERS Safety Report 25468323 (Version 2)
Quarter: 2025Q3

REPORT INFORMATION
  Report Type: Spontaneous
  Country: US (occurrence: US)
  Receive Date: 20250623
  Receipt Date: 20250725
  Transmission Date: 20251021
  Serious: Yes (Death, Hospitalization, Other)
  Sender: INCYTE
  Company Number: US-INCYTE CORPORATION-2025IN006650

PATIENT
  Age: 17 Year
  Weight: 46.5 kg

DRUGS (1)
  1. PEMAZYRE [Suspect]
     Active Substance: PEMIGATINIB
     Indication: Adenocarcinoma of colon
     Dosage: 13.5 MILLIGRAM, DAILY FOR 14 DAYS, 7 DAYS OFF
     Route: 065

REACTIONS (12)
  - Adenocarcinoma of colon [Fatal]
  - Disease progression [Fatal]
  - Electrolyte imbalance [Recovered/Resolved]
  - Acute kidney injury [Recovered/Resolved]
  - Dehydration [Recovered/Resolved]
  - Vomiting [Recovering/Resolving]
  - Off label use [Unknown]
  - Blood alkaline phosphatase increased [Not Recovered/Not Resolved]
  - Aspartate aminotransferase increased [Not Recovered/Not Resolved]
  - Blood bilirubin increased [Not Recovered/Not Resolved]
  - Hyperphosphataemia [Unknown]
  - Nausea [Recovering/Resolving]
